FAERS Safety Report 25223725 (Version 1)
Quarter: 2025Q2

REPORT INFORMATION
  Report Type: Spontaneous
  Country: GB (occurrence: GB)
  Receive Date: 20250422
  Receipt Date: 20250422
  Transmission Date: 20250717
  Serious: Yes (Disabling)
  Sender: SANDOZ
  Company Number: None

PATIENT
  Age: 30 Year
  Sex: Female
  Weight: 79 kg

DRUGS (2)
  1. COCODAMOL [Suspect]
     Active Substance: ACETAMINOPHEN\CODEINE PHOSPHATE
     Indication: Product used for unknown indication
     Route: 065
  2. SERTRALINE [Concomitant]
     Active Substance: SERTRALINE HYDROCHLORIDE
     Indication: Anxiety
     Route: 065

REACTIONS (1)
  - Pain [Recovered/Resolved with Sequelae]

NARRATIVE: CASE EVENT DATE: 20230808
